FAERS Safety Report 5592493-1 (Version None)
Quarter: 2008Q1

REPORT INFORMATION
  Report Type: 
  Country: None (occurrence: None)
  Receive Date: 20080115
  Receipt Date: 20070726
  Transmission Date: 20080703
  Serious: Yes (Death, Hospitalization, Other)
  Sender: FDA-Public Use
  Company Number: US-ABBOTT-07P-163-0360009-00

PATIENT
  Sex: Female
  Weight: 50 kg

DRUGS (45)
  1. HUMIRA [Suspect]
     Indication: RHEUMATOID ARTHRITIS
     Dates: start: 20041111, end: 20051001
  2. HUMIRA [Suspect]
     Dates: start: 20051028, end: 20051225
  3. METHOTREXATE [Concomitant]
     Indication: RHEUMATOID ARTHRITIS
     Dates: start: 19930429, end: 19970206
  4. METHOTREXATE [Concomitant]
     Dates: start: 19970206, end: 19970408
  5. METHOTREXATE [Concomitant]
     Dates: start: 19970408, end: 19990427
  6. METHOTREXATE [Concomitant]
     Dates: start: 19990427, end: 19991021
  7. METHOTREXATE [Concomitant]
     Dates: start: 20030502, end: 20030821
  8. METHOTREXATE [Concomitant]
     Dates: start: 20030821
  9. METHOTREXATE [Concomitant]
     Dates: start: 19991021, end: 20010510
  10. METHOTREXATE [Concomitant]
     Dates: start: 20010510, end: 20030502
  11. PREDNISONE TAB [Concomitant]
     Indication: DRUG USE FOR UNKNOWN INDICATION
  12. PREDNISONE TAB [Concomitant]
  13. PROPACET 100 [Concomitant]
     Indication: DRUG USE FOR UNKNOWN INDICATION
     Dates: start: 19941020
  14. RANITIDINE HYDROCHLORIDE [Concomitant]
     Indication: DRUG USE FOR UNKNOWN INDICATION
  15. FOLIC ACID [Concomitant]
     Indication: DRUG USE FOR UNKNOWN INDICATION
     Dates: start: 19990127
  16. CIMETIDINE [Concomitant]
     Indication: DRUG USE FOR UNKNOWN INDICATION
     Dates: start: 19970502
  17. CIMETIDINE [Concomitant]
     Dates: start: 19960402
  18. DEXTROMETHORPHAN HYDROBROMIDE [Concomitant]
     Indication: DRUG USE FOR UNKNOWN INDICATION
     Dates: start: 19980612
  19. FLU VACCINE [Concomitant]
     Indication: DRUG USE FOR UNKNOWN INDICATION
     Dates: start: 19991111, end: 19991111
  20. TYLOX [Concomitant]
     Indication: DRUG USE FOR UNKNOWN INDICATION
  21. FLURBIPROFEN [Concomitant]
     Indication: DRUG USE FOR UNKNOWN INDICATION
  22. LORATADINE [Concomitant]
     Indication: DRUG USE FOR UNKNOWN INDICATION
  23. RANITIDINE [Concomitant]
     Indication: DRUG USE FOR UNKNOWN INDICATION
  24. MORPHINE SULFATE [Concomitant]
     Indication: DRUG USE FOR UNKNOWN INDICATION
     Route: 048
  25. AMLODIPINE [Concomitant]
     Indication: DRUG USE FOR UNKNOWN INDICATION
  26. MACROGOL [Concomitant]
     Indication: DRUG USE FOR UNKNOWN INDICATION
     Route: 048
  27. VITAMIN CAP [Concomitant]
     Indication: DRUG USE FOR UNKNOWN INDICATION
     Route: 048
  28. ALLOPURINOL [Concomitant]
     Indication: DRUG USE FOR UNKNOWN INDICATION
  29. OPTIRAY 300 [Concomitant]
     Indication: SCAN WITH CONTRAST
     Route: 042
     Dates: start: 20060704, end: 20060704
  30. MEGESTROL ACETATE [Concomitant]
     Indication: DRUG USE FOR UNKNOWN INDICATION
     Dates: start: 20060704
  31. LEVOFLOXACIN [Concomitant]
     Indication: DRUG USE FOR UNKNOWN INDICATION
     Dates: start: 20060704
  32. ENOXAPARIN [Concomitant]
     Indication: DRUG USE FOR UNKNOWN INDICATION
     Route: 058
  33. ENSURE PLUS [Concomitant]
     Indication: DRUG USE FOR UNKNOWN INDICATION
  34. GRANULEX [Concomitant]
     Indication: DRUG USE FOR UNKNOWN INDICATION
  35. RAMIPRIL [Concomitant]
     Indication: DRUG USE FOR UNKNOWN INDICATION
  36. BENZONATATE [Concomitant]
     Indication: DRUG USE FOR UNKNOWN INDICATION
  37. TEMAZEPAM [Concomitant]
     Indication: DRUG USE FOR UNKNOWN INDICATION
  38. LACTULOSE [Concomitant]
     Indication: DRUG USE FOR UNKNOWN INDICATION
  39. ULTRACET [Concomitant]
     Indication: DRUG USE FOR UNKNOWN INDICATION
  40. PHENERGAN HCL [Concomitant]
     Indication: DRUG USE FOR UNKNOWN INDICATION
  41. OXYCODONE HCL [Concomitant]
     Indication: DRUG USE FOR UNKNOWN INDICATION
  42. MAGNESIUM HYDROXIDE TAB [Concomitant]
     Indication: DRUG USE FOR UNKNOWN INDICATION
  43. DOCUSATE SODIUM [Concomitant]
     Indication: DRUG USE FOR UNKNOWN INDICATION
  44. BISACODYL [Concomitant]
     Indication: DRUG USE FOR UNKNOWN INDICATION
  45. MAALOX [Concomitant]
     Indication: DRUG USE FOR UNKNOWN INDICATION

REACTIONS (48)
  - ANKLE FRACTURE [None]
  - ARTHRALGIA [None]
  - ARTHRITIS [None]
  - ASTHENIA [None]
  - BREATH SOUNDS ABNORMAL [None]
  - BRONCHITIS [None]
  - CARDIOMEGALY [None]
  - CHEST PAIN [None]
  - COUGH [None]
  - DECUBITUS ULCER [None]
  - DEEP VEIN THROMBOSIS [None]
  - DIARRHOEA [None]
  - DIZZINESS [None]
  - DRY EYE [None]
  - DRY MOUTH [None]
  - DYSPNOEA [None]
  - FATIGUE [None]
  - FIBRIN D DIMER INCREASED [None]
  - GASTROENTERITIS [None]
  - GENERAL PHYSICAL HEALTH DETERIORATION [None]
  - GOITRE [None]
  - HAEMOPTYSIS [None]
  - HYPERTENSION [None]
  - INAPPROPRIATE ANTIDIURETIC HORMONE SECRETION [None]
  - INCONTINENCE [None]
  - LUNG CANCER METASTATIC [None]
  - LUNG NEOPLASM [None]
  - LYMPHADENOPATHY [None]
  - LYMPHOMA [None]
  - METABOLIC ACIDOSIS [None]
  - MUSCULOSKELETAL STIFFNESS [None]
  - NAUSEA [None]
  - OCULAR HYPERAEMIA [None]
  - OEDEMA PERIPHERAL [None]
  - OESOPHAGEAL ADENOCARCINOMA [None]
  - OXYGEN SATURATION DECREASED [None]
  - PAIN [None]
  - PARAESTHESIA [None]
  - PERICARDIAL EFFUSION [None]
  - PLEURAL FIBROSIS [None]
  - POSTNASAL DRIP [None]
  - PULMONARY FIBROSIS [None]
  - RENAL FAILURE [None]
  - RESPIRATORY DISTRESS [None]
  - SECRETION DISCHARGE [None]
  - UPPER RESPIRATORY TRACT INFECTION [None]
  - URINE SODIUM INCREASED [None]
  - VOMITING [None]
